FAERS Safety Report 16386636 (Version 2)
Quarter: 2019Q3

REPORT INFORMATION
  Report Type: Spontaneous
  Country: BR (occurrence: BR)
  Receive Date: 20190604
  Receipt Date: 20190717
  Transmission Date: 20191004
  Serious: Yes (Other)
  Sender: FDA-Public Use
  Company Number: BR-AMGEN-BRASP2019087801

PATIENT
  Age: 50 Year
  Sex: Male

DRUGS (2)
  1. ENBREL [Suspect]
     Active Substance: ETANERCEPT
     Dosage: 25 MILLIGRAM, 2 TIMES/WK
     Route: 065
  2. ENBREL [Suspect]
     Active Substance: ETANERCEPT
     Indication: PRODUCT USED FOR UNKNOWN INDICATION
     Dosage: 50 MILLIGRAM, QWK
     Route: 065

REACTIONS (2)
  - Tuberculosis [Unknown]
  - Decreased immune responsiveness [Unknown]
